FAERS Safety Report 4689335-5 (Version None)
Quarter: 2005Q2

REPORT INFORMATION
  Report Type: 
  Country: None (occurrence: None)
  Receive Date: 20050608
  Receipt Date: 20050218
  Transmission Date: 20051028
  Serious: No
  Sender: FDA-Public Use
  Company Number: 2005-BP-02755BP

PATIENT
  Age: 77 Year
  Sex: Male

DRUGS (7)
  1. SPIRIVA [Suspect]
     Indication: CHRONIC OBSTRUCTIVE PULMONARY DISEASE
     Dosage: 18 MCG (18 MCG), IH
     Route: 055
     Dates: start: 20041201
  2. AEROBID [Concomitant]
  3. ATROVENT [Concomitant]
  4. VENTOLIN [Concomitant]
  5. ANTIHYPERTENSIVES (ANTIHYPERTENSIVES) [Concomitant]
  6. CHOLESTEROL REDUCER (CHOLESTEROL- AND TRIGLYCERIDE REDUCERS) [Concomitant]
  7. ANTI-DIABETICS (ANTI-DIABETICS) [Concomitant]

REACTIONS (2)
  - ASTHENIA [None]
  - FEELING HOT [None]
